FAERS Safety Report 13433230 (Version 1)
Quarter: 2017Q2

REPORT INFORMATION
  Report Type: Spontaneous
  Country: US (occurrence: US)
  Receive Date: 20170412
  Receipt Date: 20170412
  Transmission Date: 20170830
  Serious: Yes (Other)
  Sender: FDA-Public Use
  Company Number: US-BRISTOL-MYERS SQUIBB COMPANY-BMS-2017-030034

PATIENT
  Age: 75 Year
  Sex: Male
  Weight: 102.4 kg

DRUGS (1)
  1. ELIQUIS [Suspect]
     Active Substance: APIXABAN
     Indication: CEREBROVASCULAR ACCIDENT PROPHYLAXIS
     Dosage: 5 MG, BID
     Route: 065
     Dates: start: 2012

REACTIONS (4)
  - Haemorrhage subcutaneous [Unknown]
  - Blood creatinine increased [Unknown]
  - Renal impairment [Unknown]
  - Haemoptysis [Unknown]
